FAERS Safety Report 7507919-3 (Version None)
Quarter: 2011Q2

REPORT INFORMATION
  Report Type: 
  Country: None (occurrence: None)
  Receive Date: 20110527
  Receipt Date: 20110405
  Transmission Date: 20111010
  Serious: Yes (Other)
  Sender: FDA-Public Use
  Company Number: US-RANBAXY-2011US-44587

PATIENT

DRUGS (1)
  1. VERAPAMIL [Suspect]
     Indication: ARRHYTHMIA
     Dosage: 120 MG, UNK
     Route: 065

REACTIONS (2)
  - ARRHYTHMIA [None]
  - OFF LABEL USE [None]
